FAERS Safety Report 4366444-1 (Version None)
Quarter: 2004Q2

REPORT INFORMATION
  Report Type: 
  Country: None (occurrence: None)
  Receive Date: 20040527
  Receipt Date: 20040330
  Transmission Date: 20050107
  Serious: No
  Sender: FDA-Public Use
  Company Number: US-BRISTOL-MYERS SQUIBB COMPANY-12546040

PATIENT
  Age: 78 Year
  Sex: Male
  Weight: 102 kg

DRUGS (4)
  1. ERBITUX [Suspect]
     Indication: COLON CANCER METASTATIC
     Route: 042
     Dates: start: 20040323, end: 20040323
  2. DIGOXIN [Concomitant]
  3. COUMADIN [Concomitant]
  4. LOPRESSOR [Concomitant]

REACTIONS (1)
  - RASH [None]
